FAERS Safety Report 6562462-3 (Version None)
Quarter: 2010Q1

REPORT INFORMATION
  Report Type: 
  Country: None (occurrence: None)
  Receive Date: 20100130
  Receipt Date: 20091110
  Transmission Date: 20100710
  Serious: No
  Sender: FDA-Public Use
  Company Number: US-ABBOTT-09P-163-0607731-00

PATIENT
  Sex: Male
  Weight: 74.91 kg

DRUGS (3)
  1. HUMIRA [Suspect]
     Indication: DRUG USE FOR UNKNOWN INDICATION
     Route: 058
     Dates: start: 20090401
  2. KLONOPIN [Concomitant]
     Indication: ANXIETY
     Route: 048
  3. SUDAFED 12 HOUR [Concomitant]
     Indication: SINUS CONGESTION
     Route: 048

REACTIONS (7)
  - DIARRHOEA [None]
  - HEADACHE [None]
  - ILL-DEFINED DISORDER [None]
  - MALAISE [None]
  - NAUSEA [None]
  - RHINORRHOEA [None]
  - SINUS CONGESTION [None]
